FAERS Safety Report 14968060 (Version 2)
Quarter: 2018Q2

REPORT INFORMATION
  Report Type: Spontaneous
  Country: DE (occurrence: DE)
  Receive Date: 20180604
  Receipt Date: 20180618
  Transmission Date: 20180711
  Serious: Yes (Other)
  Sender: FDA-Public Use
  Company Number: DE-ROCHE-2112129

PATIENT
  Age: 80 Year
  Sex: Female
  Weight: 80 kg

DRUGS (15)
  1. MABTHERA [Suspect]
     Active Substance: RITUXIMAB
     Indication: NON-HODGKIN^S LYMPHOMA
     Dosage: TOGETHER WITH BENDAMUSTIN
     Route: 042
     Dates: start: 2014
  2. CHLORAMBUCIL [Suspect]
     Active Substance: CHLORAMBUCIL
     Indication: NON-HODGKIN^S LYMPHOMA
     Dosage: TOGETHER WITH MABTHERA?DAY 1 TO 7 OF A CYCLE
     Route: 048
     Dates: end: 20170904
  3. CHLORAMBUCIL [Suspect]
     Active Substance: CHLORAMBUCIL
     Indication: B-CELL LYMPHOMA
  4. BENDAMUSTINE HYDROCHLORIDE. [Suspect]
     Active Substance: BENDAMUSTINE HYDROCHLORIDE
     Indication: B-CELL LYMPHOMA
     Dosage: TOGETHER WITH MABTHERA?4 CYCLES; DAY 1 AND 2 OF A CYCLE
     Route: 042
     Dates: start: 20160616, end: 20160909
  5. BISOPROLOL [Concomitant]
     Active Substance: BISOPROLOL
     Indication: HYPERTENSION
     Route: 065
  6. MABTHERA [Suspect]
     Active Substance: RITUXIMAB
     Indication: B-CELL LYMPHOMA
     Dosage: TOGETHER WITH CHLORAMBUCIL
     Route: 042
     Dates: start: 2014
  7. MABTHERA [Suspect]
     Active Substance: RITUXIMAB
     Dosage: 4 CYCLES; DAY 1 OF CYCLE
     Route: 042
     Dates: start: 20160616, end: 20160909
  8. BENDAMUSTINE HYDROCHLORIDE. [Suspect]
     Active Substance: BENDAMUSTINE HYDROCHLORIDE
     Indication: NON-HODGKIN^S LYMPHOMA
     Dosage: TOGETHER WITH MABTHERA
     Route: 042
     Dates: start: 2014
  9. MABTHERA [Suspect]
     Active Substance: RITUXIMAB
     Route: 042
     Dates: start: 20171004, end: 20171004
  10. METFORMIN [Concomitant]
     Active Substance: METFORMIN HYDROCHLORIDE
     Indication: DIABETES MELLITUS
     Route: 048
  11. SAXAGLIPTIN [Concomitant]
     Active Substance: SAXAGLIPTIN
     Indication: DIABETES MELLITUS
     Route: 048
  12. MABTHERA [Suspect]
     Active Substance: RITUXIMAB
     Dosage: 3 CYCLES; DAY 1 OF CYCLE
     Route: 042
     Dates: start: 20170707
  13. ALLOPURINOL. [Concomitant]
     Active Substance: ALLOPURINOL
     Indication: PROPHYLAXIS
     Dosage: UNK, UNKNOWN FREQUENCY
     Route: 065
  14. CANDESARTAN. [Concomitant]
     Active Substance: CANDESARTAN
     Indication: HYPERTENSION
     Route: 048
  15. PANTOPRAZOL [Concomitant]
     Active Substance: PANTOPRAZOLE SODIUM
     Indication: PRODUCT USED FOR UNKNOWN INDICATION
     Route: 048

REACTIONS (4)
  - Non-Hodgkin^s lymphoma recurrent [Unknown]
  - Neutropenia [Recovered/Resolved]
  - Off label use [Unknown]
  - Intentional product use issue [Unknown]

NARRATIVE: CASE EVENT DATE: 2014
